FAERS Safety Report 23726009 (Version 1)
Quarter: 2024Q2

REPORT INFORMATION
  Report Type: Spontaneous
  Country: GB (occurrence: GB)
  Receive Date: 20240410
  Receipt Date: 20240410
  Transmission Date: 20240716
  Serious: Yes (Other)
  Sender: FDA-Public Use
  Company Number: GB-MHRA-TPP11947003C4826077YC1711471750488

PATIENT
  Age: 79 Year
  Sex: Female
  Weight: 88 kg

DRUGS (6)
  1. APIXABAN [Suspect]
     Active Substance: APIXABAN
     Indication: Ill-defined disorder
     Dosage: UNK
     Route: 065
     Dates: start: 20240326
  2. APIXABAN [Concomitant]
     Active Substance: APIXABAN
     Indication: Ill-defined disorder
     Dosage: TAKE ONE TWICE DAILY, TWO TIMES A DAY
     Route: 065
     Dates: start: 20231206, end: 20240227
  3. BISOPROLOL [Concomitant]
     Active Substance: BISOPROLOL\BISOPROLOL FUMARATE
     Indication: Ill-defined disorder
     Dosage: TAKE ONE TWICE DAILY, TWO TIMES A DAY
     Route: 065
     Dates: start: 20231206
  4. QUVIVIQ [Concomitant]
     Active Substance: DARIDOREXANT
     Indication: Ill-defined disorder
     Dosage: TAKE ONE AT NIGHT DAILY
     Route: 065
     Dates: start: 20240326
  5. RIVAROXABAN [Concomitant]
     Active Substance: RIVAROXABAN
     Indication: Ill-defined disorder
     Dosage: TAKE ONE DAILY, DAILY
     Route: 065
     Dates: start: 20240227
  6. TEMAZEPAM [Concomitant]
     Active Substance: TEMAZEPAM
     Indication: Ill-defined disorder
     Dosage: DAILY
     Route: 065
     Dates: start: 20231206

REACTIONS (1)
  - Burning feet syndrome [Recovering/Resolving]

NARRATIVE: CASE EVENT DATE: 20240326
